FAERS Safety Report 13829197 (Version 2)
Quarter: 2017Q3

REPORT INFORMATION
  Report Type: Report from Study
  Country: KR (occurrence: KR)
  Receive Date: 20170803
  Receipt Date: 20170814
  Transmission Date: 20171127
  Serious: Yes (Hospitalization)
  Sender: FDA-Public Use
  Company Number: KR-TAKEDA-2017TUS016168

PATIENT
  Age: 74 Year
  Sex: Female
  Weight: 45 kg

DRUGS (12)
  1. DONEPEZIL. [Concomitant]
     Active Substance: DONEPEZIL
     Indication: DEMENTIA ALZHEIMER^S TYPE
     Dosage: 10 MG, UNK
     Route: 048
     Dates: start: 20160905, end: 20170228
  2. ESOMEPRAZOLE [Concomitant]
     Active Substance: ESOMEPRAZOLE
     Indication: DISSEMINATED INTRAVASCULAR COAGULATION
     Dosage: 20 MG, UNK
     Route: 048
     Dates: start: 20160829, end: 20160914
  3. ALFUZOSIN [Concomitant]
     Active Substance: ALFUZOSIN
     Indication: TUBULOINTERSTITIAL NEPHRITIS
     Dosage: 10 MG, UNK
     Route: 048
     Dates: start: 20160913, end: 20170111
  4. GLICLAZIDE [Concomitant]
     Active Substance: GLICLAZIDE
     Indication: TYPE 2 DIABETES MELLITUS
     Dosage: 60 MG, UNK
     Route: 048
     Dates: start: 20161013, end: 20170228
  5. BRINTELLIX [Suspect]
     Active Substance: VORTIOXETINE HYDROBROMIDE
     Indication: MAJOR DEPRESSION
     Dosage: 5 MG, QD
     Route: 048
     Dates: start: 20160905, end: 20160918
  6. ESCITALOPRAM OXALATE. [Concomitant]
     Active Substance: ESCITALOPRAM OXALATE
     Indication: MAJOR DEPRESSION
     Dosage: 6.39 MG, UNK
     Route: 048
     Dates: start: 20160905, end: 20170227
  7. PENTOSAN POLYSULFATE SODIUM [Concomitant]
     Active Substance: PENTOSAN POLYSULFATE SODIUM
     Indication: TUBULOINTERSTITIAL NEPHRITIS
     Dosage: 100 MG, UNK
     Route: 048
     Dates: start: 20160913, end: 20161213
  8. BRINTELLIX [Suspect]
     Active Substance: VORTIOXETINE HYDROBROMIDE
     Dosage: 10 MG, QD
     Route: 048
     Dates: start: 20160919, end: 20170228
  9. MEMANTINE HCL [Concomitant]
     Active Substance: MEMANTINE
     Indication: DEMENTIA ALZHEIMER^S TYPE
     Dosage: 10 MG, UNK
     Route: 048
     Dates: start: 20160905, end: 20170228
  10. FERROUS SULFATE. [Concomitant]
     Active Substance: FERROUS SULFATE
     Indication: DISSEMINATED INTRAVASCULAR COAGULATION
     Dosage: 256 MG, UNK
     Route: 048
     Dates: start: 20160829, end: 20160914
  11. VILDAGLIPTIN [Concomitant]
     Active Substance: VILDAGLIPTIN
     Indication: TYPE 2 DIABETES MELLITUS
     Dosage: 50 MG, UNK
     Route: 048
     Dates: start: 20161013, end: 20170228
  12. SODIUM BICARBONATE. [Concomitant]
     Active Substance: SODIUM BICARBONATE
     Indication: DISSEMINATED INTRAVASCULAR COAGULATION
     Dosage: 500 MG, UNK
     Route: 048
     Dates: start: 20160919, end: 20170111

REACTIONS (2)
  - Pyelitis [Recovered/Resolved]
  - Femur fracture [Recovered/Resolved]

NARRATIVE: CASE EVENT DATE: 20161124
